FAERS Safety Report 4569940-7 (Version None)
Quarter: 2005Q1

REPORT INFORMATION
  Report Type: 
  Country: None (occurrence: None)
  Receive Date: 20050204
  Receipt Date: 20050124
  Transmission Date: 20050727
  Serious: Yes (Other)
  Sender: FDA-Public Use
  Company Number: US-JNJFOC-20040805315

PATIENT
  Sex: Female
  Weight: 63.96 kg

DRUGS (8)
  1. REMICADE [Suspect]
     Indication: RHEUMATOID ARTHRITIS
     Route: 042
  2. ARAVA [Concomitant]
     Indication: RHEUMATOID ARTHRITIS
     Dosage: ONCE OR TWICE DAILY
  3. HYDROXYCHLORIDE [Concomitant]
     Dosage: 4 OR 5 YEARS
  4. BEXTRA [Concomitant]
     Indication: OSTEOARTHRITIS
  5. BEXTRA [Concomitant]
     Indication: RHEUMATOID ARTHRITIS
  6. HYDROCODONE [Concomitant]
     Indication: PAIN
  7. FERROUS SULFATE TAB [Concomitant]
  8. CORAL CALCIUM [Concomitant]
     Indication: RHEUMATOID ARTHRITIS

REACTIONS (6)
  - BLOOD PRESSURE INCREASED [None]
  - CHEST PAIN [None]
  - INFUSION RELATED REACTION [None]
  - NAUSEA [None]
  - PAIN [None]
  - VOMITING [None]
